FAERS Safety Report 9917208 (Version 1)
Quarter: 2014Q1

REPORT INFORMATION
  Report Type: Spontaneous
  Country: US (occurrence: US)
  Receive Date: 20140221
  Receipt Date: 20140221
  Transmission Date: 20141002
  Serious: Yes (Other)
  Sender: FDA-Public Use
  Company Number: US-PFIZER INC-2014048578

PATIENT
  Age: 62 Year
  Sex: Female
  Weight: 63.49 kg

DRUGS (1)
  1. DICLOFENAC SODIUM/MISOPROSTOL [Suspect]
     Indication: ARTHRITIS
     Dosage: 200/75 MCG/MG, 2X/DAY
     Route: 048
     Dates: start: 201312

REACTIONS (2)
  - Choking [Unknown]
  - Product quality issue [Unknown]
